FAERS Safety Report 8895116 (Version 1)
Quarter: 2012Q4

REPORT INFORMATION
  Report Type: 
  Country: US (occurrence: US)
  Receive Date: 20121107
  Receipt Date: 20121107
  Transmission Date: 20130627
  Serious: Yes (Other)
  Sender: FDA-Public Use
  Company Number: US-AMGEN-USASP2011056649

PATIENT
  Sex: Female

DRUGS (5)
  1. ENBREL [Suspect]
     Indication: RHEUMATOID ARTHRITIS
     Dosage: 50 mg, qwk
     Route: 058
     Dates: start: 20111018
  2. ENBREL [Suspect]
     Dosage: 50 mg, qwk
     Route: 058
     Dates: start: 19981201, end: 20070517
  3. ARTHROTEC [Concomitant]
     Dosage: 75 mg, qd
     Route: 048
  4. PREDNISONE [Concomitant]
     Dosage: 5 mg, qd
     Route: 048
  5. INFLIXIMAB [Concomitant]

REACTIONS (2)
  - Scleritis [Recovered/Resolved]
  - Rheumatoid arthritis [Unknown]
